FAERS Safety Report 8129927-4 (Version None)
Quarter: 2012Q1

REPORT INFORMATION
  Report Type: 
  Country: None (occurrence: None)
  Receive Date: 20120210
  Receipt Date: 20120208
  Transmission Date: 20120608
  Serious: Yes (Other)
  Sender: FDA-Public Use
  Company Number: JP-PFIZER INC-2012034956

PATIENT
  Age: 85 Year
  Sex: Female

DRUGS (1)
  1. LYRICA [Suspect]
     Indication: DIABETIC NEUROPATHY
     Dosage: UNK
     Route: 048
     Dates: start: 20120101, end: 20120201

REACTIONS (3)
  - NEPHROTIC SYNDROME [None]
  - WEIGHT INCREASED [None]
  - GLYCOSYLATED HAEMOGLOBIN INCREASED [None]
